FAERS Safety Report 8200549-X (Version None)
Quarter: 2012Q1

REPORT INFORMATION
  Report Type: 
  Country: None (occurrence: None)
  Receive Date: 20120302
  Receipt Date: 20120227
  Transmission Date: 20120608
  Serious: Yes (Other)
  Sender: FDA-Public Use
  Company Number: 2011028331

PATIENT
  Age: 69 Year
  Sex: Female
  Weight: 68.0396 kg

DRUGS (34)
  1. HIZENTRA [Suspect]
  2. ALBUTEROL [Concomitant]
  3. ADVAIR DISKUS 100/50 [Concomitant]
  4. DOXYCYCLINE [Concomitant]
  5. IMITREX [Concomitant]
  6. HIZENTRA [Suspect]
  7. ROBITUSSIN DM (ROBITUSSIN /00288801/) [Concomitant]
  8. ZITHROMAX [Concomitant]
  9. SINGULAIR [Concomitant]
  10. NASONEX [Concomitant]
  11. SLOW MAG (MAGNESIUM CHLORIDE ANHYDROUS) [Concomitant]
  12. HIZENTRA [Suspect]
     Indication: IMMUNODEFICIENCY COMMON VARIABLE
     Dosage: SEE IMAGE
     Route: 058
     Dates: start: 20110318
  13. HIZENTRA [Suspect]
     Indication: IMMUNODEFICIENCY COMMON VARIABLE
     Dosage: SEE IMAGE
     Route: 058
     Dates: start: 20110318
  14. HIZENTRA [Suspect]
     Indication: IMMUNODEFICIENCY COMMON VARIABLE
     Dosage: SEE IMAGE
     Route: 058
     Dates: start: 20110318
  15. HIZENTRA [Suspect]
     Indication: IMMUNODEFICIENCY COMMON VARIABLE
     Dosage: SEE IMAGE
     Route: 058
     Dates: start: 20110415
  16. HIZENTRA [Suspect]
     Indication: IMMUNODEFICIENCY COMMON VARIABLE
     Dosage: SEE IMAGE
     Route: 058
     Dates: start: 20110415
  17. HIZENTRA [Suspect]
     Indication: IMMUNODEFICIENCY COMMON VARIABLE
     Dosage: SEE IMAGE
     Route: 058
     Dates: start: 20110318
  18. HIZENTRA [Suspect]
     Indication: IMMUNODEFICIENCY COMMON VARIABLE
     Dosage: SEE IMAGE
     Route: 058
     Dates: start: 20110318
  19. HIZENTRA [Suspect]
  20. HIZENTRA [Suspect]
  21. AVELOX [Concomitant]
  22. TOPAMAX [Concomitant]
  23. ALBUTEROL [Concomitant]
  24. XANAX [Concomitant]
  25. CLONAZEPAM [Concomitant]
  26. PRAVASTATIN [Concomitant]
  27. LEXAPRO [Concomitant]
  28. HIZENTRA [Suspect]
  29. AROMASIN [Concomitant]
  30. AMBIEN [Concomitant]
  31. RELPAX [Concomitant]
  32. NOVOLOG [Concomitant]
  33. OXYCODONE HCL [Concomitant]
  34. ASPIRIN [Concomitant]

REACTIONS (4)
  - INFUSION SITE REACTION [None]
  - RETCHING [None]
  - PURULENCE [None]
  - DIARRHOEA [None]
